FAERS Safety Report 9605820 (Version 1)
Quarter: 2013Q4

REPORT INFORMATION
  Report Type: Spontaneous
  Country: US (occurrence: US)
  Receive Date: 20131008
  Receipt Date: 20131008
  Transmission Date: 20140711
  Serious: Yes (Hospitalization)
  Sender: FDA-Public Use
  Company Number: US-AMGEN-USASP2013057493

PATIENT
  Age: 71 Year
  Sex: Male

DRUGS (2)
  1. XGEVA [Suspect]
     Indication: METASTASIS
     Route: 065
  2. XGEVA [Suspect]
     Indication: PROSTATE CANCER

REACTIONS (1)
  - Hypocalcaemia [Recovered/Resolved]
